FAERS Safety Report 4280783-4 (Version None)
Quarter: 2004Q1

REPORT INFORMATION
  Report Type: 
  Country: None (occurrence: None)
  Receive Date: 20040128
  Receipt Date: 20040128
  Transmission Date: 20041129
  Serious: Yes (Other)
  Sender: FDA-Public Use
  Company Number: None

PATIENT
  Age: 43 Year
  Sex: Male
  Weight: 69.8539 kg

DRUGS (2)
  1. IBUPROFEN 200 MG CVS [Suspect]
     Indication: BACK PAIN
     Dosage: 400 MG 3X EACH D ORAL
     Route: 048
     Dates: start: 20030929, end: 20030930
  2. CELEBREX [Suspect]
     Indication: BACK PAIN
     Dosage: 200 MG 1X ORAL
     Route: 048
     Dates: start: 20031001, end: 20031004

REACTIONS (5)
  - DEPRESSION [None]
  - HYPERTONIC BLADDER [None]
  - MICTURITION URGENCY [None]
  - POLLAKIURIA [None]
  - URINE ABNORMALITY [None]
